FAERS Safety Report 10170219 (Version 1)
Quarter: 2014Q2

REPORT INFORMATION
  Report Type: Spontaneous
  Country: GB (occurrence: GB)
  Receive Date: 20140513
  Receipt Date: 20140513
  Transmission Date: 20141212
  Serious: Yes (Other)
  Sender: FDA-Public Use
  Company Number: GB-WATSON-2014-09951

PATIENT
  Age: 71 Year
  Sex: Male
  Weight: 92 kg

DRUGS (15)
  1. SOTALOL (UNKNOWN) [Suspect]
     Indication: ATRIAL FIBRILLATION
     Dosage: 80 MG, QID
     Route: 065
  2. BISOPROLOL (UNKNOWN) [Suspect]
     Indication: ATRIAL FIBRILLATION
     Dosage: 10 MG, DAILY, OD
     Route: 065
  3. DIGOXIN (UNKNOWN) [Suspect]
     Indication: ATRIAL FIBRILLATION
     Dosage: 250 ?G, DAILY OD
     Route: 065
  4. WARFARIN (UNKNOWN) [Suspect]
     Indication: PRODUCT USED FOR UNKNOWN INDICATION
     Dosage: 3.75 MG, DAILY OD
     Route: 065
  5. CANDESARTAN (UNKNOWN) [Suspect]
     Indication: PRODUCT USED FOR UNKNOWN INDICATION
     Dosage: 32 MG, DAILY OD
     Route: 065
  6. DOXAZOSIN (UNKNOWN) [Suspect]
     Indication: PRODUCT USED FOR UNKNOWN INDICATION
     Dosage: 4 MG, DAILY
     Route: 065
  7. SPIRONOLACTONE (UNKNOWN) [Suspect]
     Indication: PRODUCT USED FOR UNKNOWN INDICATION
     Dosage: 5 MG, DAILY OD
     Route: 065
  8. DRONEDARONE [Suspect]
     Indication: ATRIAL FIBRILLATION
     Dosage: 400 MG, DAILY OD
     Route: 065
  9. ATORVASTATIN [Concomitant]
     Indication: PRODUCT USED FOR UNKNOWN INDICATION
     Dosage: 40 MG, DAILY OD
     Route: 065
  10. ALLOPURINOL [Concomitant]
     Indication: PRODUCT USED FOR UNKNOWN INDICATION
     Dosage: 300 MG, DAILY OD
     Route: 065
  11. FINASTERIDE [Concomitant]
     Indication: PRODUCT USED FOR UNKNOWN INDICATION
     Dosage: 5 MG, DAILY OD
     Route: 065
  12. METFORMIN [Concomitant]
     Indication: PRODUCT USED FOR UNKNOWN INDICATION
     Dosage: 500 MG, QID (FOUR TIMES A DAY)
     Route: 065
  13. GAVISCON ADVANCE [Concomitant]
     Indication: PRODUCT USED FOR UNKNOWN INDICATION
     Dosage: 10 ML, PRN( AS NEEDED)
     Route: 065
  14. OMACOR [Concomitant]
     Indication: PRODUCT USED FOR UNKNOWN INDICATION
     Dosage: 1 MG, DAILY OD
     Route: 065
  15. SANDO K                            /00031402/ [Concomitant]
     Indication: PRODUCT USED FOR UNKNOWN INDICATION
     Dosage: 12 MMOL, BID
     Route: 065

REACTIONS (7)
  - Renal failure acute [Recovering/Resolving]
  - Oedema [Unknown]
  - Xanthopsia [Unknown]
  - Hypotension [Unknown]
  - Bradycardia [Unknown]
  - International normalised ratio increased [Unknown]
  - Hypomagnesaemia [Not Recovered/Not Resolved]
